FAERS Safety Report 10874816 (Version 3)
Quarter: 2015Q1

REPORT INFORMATION
  Report Type: Report from Study
  Country: AR (occurrence: AR)
  Receive Date: 20150227
  Receipt Date: 20150330
  Transmission Date: 20150721
  Serious: Yes (Death, Hospitalization, Other)
  Sender: FDA-Public Use
  Company Number: AR-BRISTOL-MYERS SQUIBB COMPANY-BMS-2015-011164

PATIENT
  Sex: Female

DRUGS (4)
  1. IRINOTECAN [Concomitant]
     Active Substance: IRINOTECAN
     Indication: COLON CANCER METASTATIC
     Dosage: UNK, Q2WK
     Route: 065
  2. LEUCOVORIN                         /00566701/ [Concomitant]
     Active Substance: LEUCOVORIN
     Indication: COLON CANCER METASTATIC
     Dosage: UNK, Q2WK
     Route: 065
  3. CETUXIMAB [Suspect]
     Active Substance: CETUXIMAB
     Indication: COLON CANCER METASTATIC
     Dosage: UNK, Q2WK
     Route: 065
     Dates: start: 20150123
  4. 5-FLUOROURACIL                     /00098801/ [Concomitant]
     Active Substance: FLUOROURACIL
     Indication: COLON CANCER METASTATIC
     Dosage: UNK, Q2WK
     Route: 040

REACTIONS (8)
  - Asthenia [Fatal]
  - Leukopenia [Fatal]
  - Respiratory arrest [Fatal]
  - Multi-organ failure [Fatal]
  - Pleural effusion [Fatal]
  - Deep vein thrombosis [Fatal]
  - Ascites [Fatal]
  - Thrombosis [Fatal]

NARRATIVE: CASE EVENT DATE: 201502
